FAERS Safety Report 20822405 (Version 1)
Quarter: 2022Q2

REPORT INFORMATION
  Report Type: Other
  Country: US (occurrence: US)
  Receive Date: 20220512
  Receipt Date: 20220512
  Transmission Date: 20220721
  Serious: Yes (Other)
  Sender: FDA-Public Use
  Company Number: US-DECIPHERA PHARMACEUTICALS LLC-2022US000384

PATIENT
  Sex: Male

DRUGS (1)
  1. QINLOCK [Suspect]
     Active Substance: RIPRETINIB
     Indication: Gastrointestinal stromal tumour
     Dosage: 150 MILLIGRAM, QD
     Route: 048
     Dates: start: 20210923

REACTIONS (5)
  - Squamous cell carcinoma [Unknown]
  - Glycosylated haemoglobin increased [Unknown]
  - Hyperkeratosis [Unknown]
  - Hypertension [Unknown]
  - Product dose omission issue [Unknown]
